FAERS Safety Report 11170038 (Version 1)
Quarter: 2015Q2

REPORT INFORMATION
  Report Type: Spontaneous
  Country: US (occurrence: US)
  Receive Date: 20150608
  Receipt Date: 20150608
  Transmission Date: 20150821
  Serious: No
  Sender: FDA-Public Use
  Company Number: US-ASTRAZENECA-2015SE52854

PATIENT
  Sex: Female

DRUGS (2)
  1. SYMBICORT [Suspect]
     Active Substance: BUDESONIDE\FORMOTEROL FUMARATE DIHYDRATE
     Indication: BRONCHITIS
     Dosage: 160/4.5 MCG, UNKNOWN
     Route: 055
     Dates: start: 2015
  2. SYMBICORT [Suspect]
     Active Substance: BUDESONIDE\FORMOTEROL FUMARATE DIHYDRATE
     Indication: BRONCHOPNEUMONIA
     Dosage: 160/4.5 MCG, UNKNOWN
     Route: 055
     Dates: start: 2015

REACTIONS (4)
  - Intentional product misuse [Unknown]
  - Cough [Unknown]
  - Wheezing [Unknown]
  - Product use issue [Unknown]

NARRATIVE: CASE EVENT DATE: 2015
